FAERS Safety Report 13006765 (Version 1)
Quarter: 2016Q4

REPORT INFORMATION
  Report Type: Spontaneous
  Country: US (occurrence: US)
  Receive Date: 20161207
  Receipt Date: 20161207
  Transmission Date: 20170207
  Serious: Yes (Death, Other)
  Sender: FDA-Public Use
  Company Number: US-CELGENEUS-USA-2016117715

PATIENT

DRUGS (4)
  1. MELPHALAN [Concomitant]
     Active Substance: MELPHALAN
     Indication: PRODUCT USED FOR UNKNOWN INDICATION
     Route: 065
  2. DEXAMETHASONE. [Concomitant]
     Active Substance: DEXAMETHASONE
     Indication: PRODUCT USED FOR UNKNOWN INDICATION
     Route: 065
  3. POMALYST [Suspect]
     Active Substance: POMALIDOMIDE
     Indication: PLASMA CELL MYELOMA
     Dosage: 4 MG
     Route: 048
  4. PEMBROLIZUMAB. [Concomitant]
     Active Substance: PEMBROLIZUMAB
     Indication: PRODUCT USED FOR UNKNOWN INDICATION
     Dosage: 2MG/KG
     Route: 041

REACTIONS (13)
  - Pyrexia [Unknown]
  - Plasma cell myeloma [Fatal]
  - Diarrhoea [Unknown]
  - Thrombocytopenia [Unknown]
  - Nausea [Unknown]
  - Colitis [Unknown]
  - Fatigue [Unknown]
  - Neutropenia [Unknown]
  - Vomiting [Unknown]
  - Anaemia [Unknown]
  - Oedema peripheral [Unknown]
  - Renal failure [Unknown]
  - Dyspnoea [Unknown]
